FAERS Safety Report 14467203 (Version 3)
Quarter: 2018Q2

REPORT INFORMATION
  Report Type: Report from Study
  Country: HU (occurrence: HU)
  Receive Date: 20180131
  Receipt Date: 20180523
  Transmission Date: 20180711
  Serious: Yes (Hospitalization, Other)
  Sender: FDA-Public Use
  Company Number: PHHY2018HU004857

PATIENT
  Age: 74 Year
  Sex: Male
  Weight: 99 kg

DRUGS (9)
  1. SOTALOL. [Interacting]
     Active Substance: SOTALOL
     Indication: PRODUCT USED FOR UNKNOWN INDICATION
     Route: 065
  2. POTASSIUM [Concomitant]
     Active Substance: POTASSIUM
     Indication: PRODUCT USED FOR UNKNOWN INDICATION
     Route: 065
  3. TAFINLAR [Interacting]
     Active Substance: DABRAFENIB MESYLATE
     Dosage: 150 MG, QD
     Route: 048
     Dates: start: 201711
  4. MEKINIST [Interacting]
     Active Substance: TRAMETINIB DIMETHYL SULFOXIDE
     Indication: MALIGNANT MELANOMA
     Dosage: 1 DF, QD (EXPIRY DATE: 30 APR 2018 OF 2F3U)
     Route: 048
     Dates: start: 20170620
  5. XARELTO [Concomitant]
     Active Substance: RIVAROXABAN
     Indication: PRODUCT USED FOR UNKNOWN INDICATION
     Dosage: 20 MG, QD
     Route: 065
  6. TALLITON [Concomitant]
     Active Substance: CARVEDILOL
     Indication: PRODUCT USED FOR UNKNOWN INDICATION
     Dosage: 6.25 MG, BID
     Route: 065
  7. PANTOPRAZOLE [Concomitant]
     Active Substance: PANTOPRAZOLE
     Indication: PRODUCT USED FOR UNKNOWN INDICATION
     Dosage: 20 MG, QD
     Route: 065
  8. PERINDOPRIL [Concomitant]
     Active Substance: PERINDOPRIL
     Indication: PRODUCT USED FOR UNKNOWN INDICATION
     Dosage: 10 MG, UNK (10/2.5 MG IN THE MORNING AND 10/5 MG IN THE EVENING)
     Route: 065
  9. TAFINLAR [Suspect]
     Active Substance: DABRAFENIB MESYLATE
     Indication: MALIGNANT MELANOMA
     Dosage: 150 MG, BID
     Route: 048
     Dates: start: 20170620

REACTIONS (14)
  - Ejection fraction decreased [Unknown]
  - Peripheral swelling [Unknown]
  - Alanine aminotransferase increased [Unknown]
  - Visual impairment [Unknown]
  - Asthenia [Unknown]
  - Blood creatine phosphokinase increased [Recovering/Resolving]
  - Sarcoidosis [Recovering/Resolving]
  - Atrial fibrillation [Recovered/Resolved]
  - Blood pressure increased [Unknown]
  - Congestive cardiomyopathy [Unknown]
  - Atrial fibrillation [Unknown]
  - Petechiae [Unknown]
  - Hypotension [Unknown]
  - Drug interaction [Unknown]

NARRATIVE: CASE EVENT DATE: 20170920
